FAERS Safety Report 5491898-7 (Version None)
Quarter: 2007Q4

REPORT INFORMATION
  Report Type: 
  Country: None (occurrence: None)
  Receive Date: 20071018
  Receipt Date: 20071011
  Transmission Date: 20080405
  Serious: Yes (Life-Threatening, Hospitalization)
  Sender: FDA-Public Use
  Company Number: US021428

PATIENT
  Age: 70 Year
  Sex: Male
  Weight: 91 kg

DRUGS (1)
  1. TRISENOX [Suspect]
     Indication: MULTIPLE MYELOMA
     Dosage: 0.25 MG/KG INTRAVENOUS
     Route: 042
     Dates: start: 20070505, end: 20070509

REACTIONS (4)
  - ACUTE RESPIRATORY FAILURE [None]
  - ATELECTASIS [None]
  - FEBRILE NEUTROPENIA [None]
  - PLEURAL EFFUSION [None]
